FAERS Safety Report 14563626 (Version 1)
Quarter: 2018Q1

REPORT INFORMATION
  Report Type: Spontaneous
  Country: US (occurrence: US)
  Receive Date: 20180222
  Receipt Date: 20180222
  Transmission Date: 20180509
  Serious: Yes (Death)
  Sender: FDA-Public Use
  Company Number: US-AMNEAL PHARMACEUTICALS COMPANY GMBH-2018AGH00002

PATIENT
  Age: 71 Year
  Sex: Male
  Weight: 126.8 kg

DRUGS (14)
  1. METHYLPREDNISOLONE SODIUM SUCCINATE. [Suspect]
     Active Substance: METHYLPREDNISOLONE SODIUM SUCCINATE
     Indication: BACK PAIN
     Dosage: 40 MG, 1X/DAY
     Dates: start: 20170305, end: 20170306
  2. WARFARIN [Concomitant]
     Active Substance: WARFARIN
  3. DETROL LA [Concomitant]
     Active Substance: TOLTERODINE TARTRATE
  4. LEVOTHYROXINE. [Concomitant]
     Active Substance: LEVOTHYROXINE
  5. INSULIN [Concomitant]
     Active Substance: INSULIN NOS
  6. LIPITOR [Concomitant]
     Active Substance: ATORVASTATIN CALCIUM
  7. NORCO [Concomitant]
     Active Substance: ACETAMINOPHEN\HYDROCODONE BITARTRATE
  8. ROVAXIN [Concomitant]
  9. CATAPRES [Concomitant]
     Active Substance: CLONIDINE HYDROCHLORIDE
  10. METOPROLOL. [Concomitant]
     Active Substance: METOPROLOL
     Dosage: UNK
  11. MAGNESSIUM CHLORIDE [Concomitant]
  12. FUROSEMIDE. [Concomitant]
     Active Substance: FUROSEMIDE
  13. IMURAN [Concomitant]
     Active Substance: AZATHIOPRINE
  14. COQ10 [Concomitant]
     Active Substance: UBIDECARENONE

REACTIONS (4)
  - Muscular weakness [None]
  - Muscle spasms [None]
  - Death [Fatal]
  - Weight decreased [Unknown]

NARRATIVE: CASE EVENT DATE: 20170301
